FAERS Safety Report 4713001-0 (Version None)
Quarter: 2005Q3

REPORT INFORMATION
  Report Type: 
  Country: None (occurrence: None)
  Receive Date: 20050713
  Receipt Date: 20050602
  Transmission Date: 20060218
  Serious: Yes (Other)
  Sender: FDA-Public Use
  Company Number: GBWYE715703JUN05

PATIENT
  Sex: Female

DRUGS (10)
  1. ENBREL [Suspect]
     Indication: PSORIASIS
     Route: 058
     Dates: start: 20041101
  2. ENBREL [Suspect]
     Dates: start: 20050101
  3. VERAPAMIL [Concomitant]
     Dosage: 120,G FREQUENCY UNKNOWN
  4. ISONIAZID [Concomitant]
  5. PYRIDOXIN [Concomitant]
  6. DESLORATADINE [Concomitant]
  7. ACETAMINOPHEN [Concomitant]
  8. FLUTICASONE PROPIONATE [Concomitant]
  9. TARIVID [Concomitant]
  10. MOTILIUM [Concomitant]

REACTIONS (2)
  - LETHARGY [None]
  - PALPITATIONS [None]
